FAERS Safety Report 23046706 (Version 1)
Quarter: 2023Q4

REPORT INFORMATION
  Report Type: Spontaneous
  Country: HU (occurrence: HU)
  Receive Date: 20231009
  Receipt Date: 20231009
  Transmission Date: 20240110
  Serious: Yes (Death, Other)
  Sender: FDA-Public Use
  Company Number: HU-PFIZER INC-PV202300164161

PATIENT
  Age: 48 Year
  Sex: Male

DRUGS (3)
  1. AVIBACTAM SODIUM\CEFTAZIDIME [Suspect]
     Active Substance: AVIBACTAM SODIUM\CEFTAZIDIME
     Indication: Product used for unknown indication
     Dosage: UNK
     Route: 065
  2. METRONIDAZOLE [Concomitant]
     Active Substance: METRONIDAZOLE
     Indication: Product used for unknown indication
  3. LINEZOLID [Concomitant]
     Active Substance: LINEZOLID
     Indication: Product used for unknown indication

REACTIONS (8)
  - Disease progression [Fatal]
  - Enterococcal infection [Fatal]
  - Altered state of consciousness [Fatal]
  - Escherichia infection [Fatal]
  - Fournier^s gangrene [Fatal]
  - Cardiovascular disorder [Fatal]
  - Dyspnoea [Fatal]
  - Pseudomonas infection [Fatal]
